FAERS Safety Report 9830154 (Version 2)
Quarter: 2014Q1

REPORT INFORMATION
  Report Type: Not Available
  Country: NO (occurrence: NO)
  Receive Date: 20140120
  Receipt Date: 20140317
  Transmission Date: 20141002
  Serious: Yes (Other)
  Sender: FDA-Public Use
  Company Number: NO-NAPPMUNDI-GBR-2014-0016867

PATIENT
  Age: 33 Year
  Sex: Male

DRUGS (10)
  1. BUPRENORPHINE [Suspect]
     Indication: PRODUCT USED FOR UNKNOWN INDICATION
     Dosage: UNK MCG, Q1H
     Route: 062
  2. CHLORPROTHIXENE [Suspect]
     Indication: PRODUCT USED FOR UNKNOWN INDICATION
     Dosage: 0.2 DDDS
  3. LEVOMEPROMAZINE [Suspect]
     Indication: PRODUCT USED FOR UNKNOWN INDICATION
     Dosage: 0.5 DDDS
  4. LEVOMEPROMAZINE [Suspect]
     Dosage: ON DEMAND
  5. OLANZAPINE [Suspect]
     Indication: PRODUCT USED FOR UNKNOWN INDICATION
     Dosage: 1.5 DDDS
  6. OLANZAPINE [Suspect]
     Dosage: 2.5 DEFINED DAILY DOSE (DDDS)
  7. PERPHENAZINE [Suspect]
     Indication: PRODUCT USED FOR UNKNOWN INDICATION
     Dosage: 0.3
  8. CLOZAPINE [Suspect]
     Indication: PRODUCT USED FOR UNKNOWN INDICATION
     Dosage: 1/4 OF DAILY DOSE AT BED TIME, WITHOUT CHANGING THE DAILY DOSE.
  9. CLOZAPINE [Suspect]
     Dosage: 1.3, BID
  10. RISPERIDONE [Suspect]
     Indication: PRODUCT USED FOR UNKNOWN INDICATION
     Dosage: 0.8 DDDS

REACTIONS (2)
  - Drug abuse [Recovered/Resolved]
  - Priapism [Recovered/Resolved]
